FAERS Safety Report 8496485-4 (Version None)
Quarter: 2012Q3

REPORT INFORMATION
  Report Type: 
  Country: None (occurrence: None)
  Receive Date: 20120709
  Receipt Date: 20120629
  Transmission Date: 20120928
  Serious: Yes (Death, Other)
  Sender: FDA-Public Use
  Company Number: DE-MPIJNJ-2012-04246

PATIENT

DRUGS (4)
  1. VELCADE [Suspect]
     Indication: SALIVARY GLAND CANCER
  2. THALIDOMIDE [Suspect]
     Indication: SALIVARY GLAND CANCER
  3. VELCADE [Suspect]
     Indication: MULTIPLE MYELOMA
  4. THALIDOMIDE [Suspect]
     Indication: MULTIPLE MYELOMA

REACTIONS (2)
  - SALIVARY GLAND CANCER [None]
  - NEOPLASM MALIGNANT [None]
